FAERS Safety Report 23813200 (Version 3)
Quarter: 2024Q2

REPORT INFORMATION
  Report Type: Other
  Country: CA (occurrence: None)
  Receive Date: 20240503
  Receipt Date: 20240607
  Transmission Date: 20240715
  Serious: Yes (Hospitalization)
  Sender: FDA-Public Use
  Company Number: CA-ROCHE-3552516

PATIENT
  Sex: Female

DRUGS (3)
  1. OCREVUS [Suspect]
     Active Substance: OCRELIZUMAB
     Indication: Relapsing-remitting multiple sclerosis
     Dosage: 300 MG AT DAY 0 AND 14, THEN 600 MG EVERY 6 MONTHS
     Route: 042
     Dates: start: 20220922
  2. PENICILLIN G [Concomitant]
     Active Substance: PENICILLIN G
     Dates: start: 20240422
  3. PREDNISONE [Concomitant]
     Active Substance: PREDNISONE
     Dates: start: 20240423

REACTIONS (1)
  - Pneumonia [Unknown]
